FAERS Safety Report 6421382-5 (Version None)
Quarter: 2009Q4

REPORT INFORMATION
  Report Type: 
  Country: None (occurrence: None)
  Receive Date: 20091030
  Receipt Date: 20091026
  Transmission Date: 20100525
  Serious: Yes (Death)
  Sender: FDA-Public Use
  Company Number: PHEH2007US13069

PATIENT
  Sex: Male

DRUGS (3)
  1. EXJADE [Suspect]
     Indication: BRAIN NEOPLASM MALIGNANT
     Dosage: 500 MG, QD
     Route: 048
     Dates: start: 20060829, end: 20070910
  2. EXJADE [Suspect]
     Indication: IRON OVERLOAD
  3. CHEMOTHERAPEUTICS,OTHER [Concomitant]

REACTIONS (2)
  - CONCOMITANT DISEASE PROGRESSION [None]
  - NEUROBLASTOMA [None]
